FAERS Safety Report 20553822 (Version 1)
Quarter: 2022Q1

REPORT INFORMATION
  Report Type: Spontaneous
  Country: US (occurrence: US)
  Receive Date: 20220304
  Receipt Date: 20220304
  Transmission Date: 20220424
  Serious: Yes (Other)
  Sender: FDA-Public Use
  Company Number: US-GLAXOSMITHKLINE-US2022GSK040925

PATIENT
  Sex: Male

DRUGS (8)
  1. ZANTAC [Suspect]
     Active Substance: RANITIDINE HYDROCHLORIDE
     Indication: Gastric ulcer
     Dosage: 150 MG, QD
     Route: 065
     Dates: start: 198506, end: 199601
  2. ZANTAC [Suspect]
     Active Substance: RANITIDINE HYDROCHLORIDE
     Indication: Vagotomy
  3. ZANTAC [Suspect]
     Active Substance: RANITIDINE HYDROCHLORIDE
     Indication: Gastric ulcer
     Dosage: 150 MG, QD
     Route: 065
     Dates: start: 198506, end: 199601
  4. ZANTAC [Suspect]
     Active Substance: RANITIDINE HYDROCHLORIDE
     Indication: Vagotomy
  5. RANITIDINE [Suspect]
     Active Substance: RANITIDINE
     Indication: Gastric ulcer
     Dosage: 150 MG, QD
     Route: 065
     Dates: start: 199601, end: 202011
  6. RANITIDINE [Suspect]
     Active Substance: RANITIDINE
     Indication: Vagotomy
  7. RANITIDINE [Suspect]
     Active Substance: RANITIDINE
     Indication: Gastric ulcer
     Dosage: 150 MG, QD
     Route: 065
     Dates: start: 199601, end: 202011
  8. RANITIDINE [Suspect]
     Active Substance: RANITIDINE
     Indication: Vagotomy

REACTIONS (1)
  - Prostate cancer [Unknown]
